FAERS Safety Report 15678612 (Version 2)
Quarter: 2019Q2

REPORT INFORMATION
  Report Type: Spontaneous
  Country: CZ (occurrence: CZ)
  Receive Date: 20181202
  Receipt Date: 20190402
  Transmission Date: 20190711
  Serious: Yes (Life-Threatening, Hospitalization, Other)
  Sender: FDA-Public Use
  Company Number: CZ-TEVA-2018-CZ-982452

PATIENT
  Age: 64 Year
  Sex: Female

DRUGS (8)
  1. HELICID [Concomitant]
     Active Substance: OMEPRAZOLE
     Indication: PROPHYLAXIS AGAINST GASTROINTESTINAL ULCER
     Dosage: 20 MILLIGRAM DAILY;
     Route: 048
  2. TENAXUM [Concomitant]
     Active Substance: RILMENIDINE
     Indication: HYPERTENSION
     Dosage: 1 MILLIGRAM DAILY;
     Route: 048
  3. TRITACE [Concomitant]
     Active Substance: RAMIPRIL
     Indication: HYPERTENSION
     Dosage: 5 MILLIGRAM DAILY;
     Route: 048
  4. ZOLPINOX [Concomitant]
     Indication: INSOMNIA
     Dosage: 10 MILLIGRAM DAILY;
     Route: 048
     Dates: start: 201507
  5. PACLITAXEL. [Suspect]
     Active Substance: PACLITAXEL
     Indication: BREAST CANCER
     Dosage: LAST DOSE PRIOR TO AE: 13-OCT-2015
     Route: 042
     Dates: start: 20150707, end: 20151013
  6. CYCLOPHOSPHAMIDE. [Suspect]
     Active Substance: CYCLOPHOSPHAMIDE
     Indication: BREAST CANCER
     Dosage: LAST DOSE PRIOR TO AE: 17-DEC-2015
     Route: 042
     Dates: start: 20151029, end: 20151217
  7. CARBOPLATIN. [Suspect]
     Active Substance: CARBOPLATIN
     Indication: BREAST CANCER
     Dosage: LAST DOSE PRIOR TO AE: 07-OCT-2015
     Route: 042
     Dates: start: 20150709, end: 20151007
  8. DOXORUBICIN [Suspect]
     Active Substance: DOXORUBICIN
     Indication: BREAST CANCER
     Dosage: LAST DOSE PRIOR TO AE: 15-DEC-2015
     Route: 042
     Dates: start: 20151029, end: 20151215

REACTIONS (1)
  - Acute myeloid leukaemia [Not Recovered/Not Resolved]

NARRATIVE: CASE EVENT DATE: 20181101
